FAERS Safety Report 16869314 (Version 5)
Quarter: 2021Q4

REPORT INFORMATION
  Report Type: Spontaneous
  Country: HU (occurrence: HU)
  Receive Date: 20190930
  Receipt Date: 20211022
  Transmission Date: 20220303
  Serious: Yes (Hospitalization, Other)
  Sender: FDA-Public Use
  Company Number: HU-MENARINI-HU-MEN-066153

PATIENT
  Age: 55 Year
  Sex: Male

DRUGS (5)
  1. WARFARIN [Interacting]
     Active Substance: WARFARIN
     Indication: Cardiovascular disorder
     Dosage: UNK
     Route: 065
  2. WARFARIN [Interacting]
     Active Substance: WARFARIN
     Indication: Cardiac disorder
  3. WARFARIN [Interacting]
     Active Substance: WARFARIN
     Indication: Anticoagulant therapy
  4. ASPIRIN [Interacting]
     Active Substance: ASPIRIN
     Indication: Antiplatelet therapy
     Dosage: UNK
     Route: 065
  5. IBUPROFEN [Interacting]
     Active Substance: IBUPROFEN
     Indication: Procedural pain
     Dosage: UNK
     Route: 065

REACTIONS (7)
  - Drug interaction [Unknown]
  - Anaemia [Unknown]
  - Gastritis erosive [Unknown]
  - Peptic ulcer [Unknown]
  - Gastric ulcer haemorrhage [Recovering/Resolving]
  - Melaena [Unknown]
  - Gastric ulcer [Recovering/Resolving]
